FAERS Safety Report 7744818-6 (Version None)
Quarter: 2011Q3

REPORT INFORMATION
  Report Type: 
  Country: None (occurrence: None)
  Receive Date: 20110912
  Receipt Date: 20110912
  Transmission Date: 20111222
  Serious: Yes (Hospitalization, Other)
  Sender: FDA-Public Use
  Company Number: None

PATIENT
  Age: 64 Year
  Sex: Male
  Weight: 81.646 kg

DRUGS (2)
  1. PREVACID [Suspect]
     Indication: OESOPHAGEAL ULCER
     Dosage: 15MG
     Route: 048
     Dates: start: 20110515, end: 20110824
  2. PREVACID [Suspect]
     Indication: DYSPEPSIA
     Dosage: 15MG
     Route: 048
     Dates: start: 20110515, end: 20110824

REACTIONS (5)
  - COLD SWEAT [None]
  - ASTHENIA [None]
  - HEART RATE INCREASED [None]
  - HYPERTENSION [None]
  - DIZZINESS [None]
